FAERS Safety Report 6661888-7 (Version None)
Quarter: 2010Q1

REPORT INFORMATION
  Report Type: 
  Country: None (occurrence: None)
  Receive Date: 20100331
  Receipt Date: 20090911
  Transmission Date: 20100710
  Serious: No
  Sender: FDA-Public Use
  Company Number: US-BRISTOL-MYERS SQUIBB COMPANY-14776702

PATIENT
  Age: 59 Year
  Sex: Male
  Weight: 100 kg

DRUGS (10)
  1. ERBITUX [Suspect]
     Indication: COLON CANCER METASTATIC
     Dosage: WEEKLY ERBITUX 540MG IV 28MAY09-29JUL09
     Route: 042
     Dates: start: 20090528, end: 20090729
  2. RADIATION THERAPY [Concomitant]
     Indication: LYMPHADENOPATHY MEDIASTINAL
  3. ZYRTEC [Concomitant]
  4. XANAX [Concomitant]
  5. UROXATRAL [Concomitant]
  6. ROXICET [Concomitant]
  7. NEXIUM [Concomitant]
  8. MICARDIS [Concomitant]
  9. MAGNESIUM [Concomitant]
  10. ASPIRIN [Concomitant]

REACTIONS (2)
  - PARONYCHIA [None]
  - RASH [None]
